FAERS Safety Report 25554592 (Version 2)
Quarter: 2025Q3

REPORT INFORMATION
  Report Type: Report from Study
  Country: US (occurrence: US)
  Receive Date: 20250715
  Receipt Date: 20250825
  Transmission Date: 20251021
  Serious: Yes (Hospitalization, Other)
  Sender: ABBVIE
  Company Number: US-ABBVIE-6366241

PATIENT
  Age: 81 Year
  Sex: Male

DRUGS (1)
  1. CREON [Suspect]
     Active Substance: PANCRELIPASE AMYLASE\PANCRELIPASE LIPASE\PANCRELIPASE PROTEASE
     Indication: Pancreatic failure
     Route: 048
     Dates: start: 20250626

REACTIONS (10)
  - Gastritis bacterial [Recovering/Resolving]
  - Nausea [Unknown]
  - Haematochezia [Not Recovered/Not Resolved]
  - Full blood count decreased [Unknown]
  - Diarrhoea [Unknown]
  - Swelling [Unknown]
  - Haematological infection [Unknown]
  - Asthenia [Unknown]
  - Vomiting [Unknown]
  - Sepsis [Recovering/Resolving]

NARRATIVE: CASE EVENT DATE: 20250101
